FAERS Safety Report 7941829-2 (Version None)
Quarter: 2011Q4

REPORT INFORMATION
  Report Type: 
  Country: None (occurrence: None)
  Receive Date: 20111128
  Receipt Date: 20111121
  Transmission Date: 20120403
  Serious: Yes (Other)
  Sender: FDA-Public Use
  Company Number: PT-JNJFOC-20110201807

PATIENT
  Sex: Female
  Weight: 1.26 kg

DRUGS (7)
  1. ETRAVIRINE [Suspect]
     Indication: FOETAL EXPOSURE DURING PREGNANCY
     Route: 064
  2. TRUVADA [Concomitant]
     Indication: FOETAL EXPOSURE DURING PREGNANCY
     Route: 064
  3. ETRAVIRINE [Suspect]
     Route: 064
     Dates: start: 20091126, end: 20091210
  4. AZT [Concomitant]
     Indication: FOETAL EXPOSURE DURING PREGNANCY
     Route: 064
  5. RALTEGRAVIR [Concomitant]
     Indication: FOETAL EXPOSURE DURING PREGNANCY
     Route: 064
     Dates: start: 20091127, end: 20091210
  6. CLINDAMYCIN [Concomitant]
     Indication: FOETAL EXPOSURE DURING PREGNANCY
     Route: 064
     Dates: start: 20100605, end: 20100617
  7. BETAMETHASONE [Concomitant]
     Indication: FOETAL EXPOSURE DURING PREGNANCY
     Route: 064
     Dates: start: 20100605, end: 20100605

REACTIONS (1)
  - PREMATURE BABY [None]
